FAERS Safety Report 14450795 (Version 1)
Quarter: 2018Q1

REPORT INFORMATION
  Report Type: Other
  Country: PL (occurrence: PL)
  Receive Date: 20180129
  Receipt Date: 20180129
  Transmission Date: 20180509
  Serious: Yes (Hospitalization, Other)
  Sender: FDA-Public Use
  Company Number: PL-DEXPHARM-20171973

PATIENT
  Age: 85 Year
  Sex: Female

DRUGS (9)
  1. ZOFENOPRIL [Interacting]
     Active Substance: ZOFENOPRIL
  2. QUETIAPINE. [Interacting]
     Active Substance: QUETIAPINE
  3. MIANSERINE [Interacting]
     Active Substance: MIANSERIN HYDROCHLORIDE
  4. CARVEDILOL. [Suspect]
     Active Substance: CARVEDILOL
  5. MILK THISTLE [Interacting]
     Active Substance: DIETARY SUPPLEMENT\HERBALS\MILK THISTLE
  6. DONEPEZIL. [Interacting]
     Active Substance: DONEPEZIL
  7. ATORVASTATIN [Interacting]
     Active Substance: ATORVASTATIN
  8. SERTRALINE [Interacting]
     Active Substance: SERTRALINE HYDROCHLORIDE
  9. TORASEMIDE [Interacting]
     Active Substance: TORSEMIDE

REACTIONS (10)
  - Bradycardia [Recovered/Resolved]
  - Drug interaction [Recovered/Resolved]
  - Nausea [Recovered/Resolved]
  - Muscle contracture [Recovered/Resolved]
  - Diarrhoea [Recovered/Resolved]
  - Abdominal pain [Recovered/Resolved]
  - Liver function test increased [Recovered/Resolved]
  - Hypokalaemia [Recovered/Resolved]
  - Hyperhidrosis [Recovered/Resolved]
  - Loss of consciousness [Recovered/Resolved]
